FAERS Safety Report 15351197 (Version 2)
Quarter: 2018Q3

REPORT INFORMATION
  Report Type: Spontaneous
  Country: US (occurrence: US)
  Receive Date: 20180905
  Receipt Date: 20180910
  Transmission Date: 20181010
  Serious: No
  Sender: FDA-Public Use
  Company Number: US-PFIZER INC-2018356346

PATIENT

DRUGS (2)
  1. RELPAX [Suspect]
     Active Substance: ELETRIPTAN HYDROBROMIDE
     Indication: MIGRAINE
     Dosage: 40 MG, UNK (TAKE 1 TAB)
  2. SKELAXIN [Suspect]
     Active Substance: METAXALONE
     Dosage: 800 MG, 3X/DAY (1 TAB)
     Route: 048

REACTIONS (3)
  - Feeling abnormal [Unknown]
  - Vomiting [Unknown]
  - Memory impairment [Unknown]
